FAERS Safety Report 13185730 (Version 1)
Quarter: 2017Q1

REPORT INFORMATION
  Report Type: Spontaneous
  Country: US (occurrence: US)
  Receive Date: 20170203
  Receipt Date: 20170203
  Transmission Date: 20170428
  Serious: No
  Sender: FDA-Public Use
  Company Number: US-009507513-1702USA001566

PATIENT
  Age: 29 Year
  Sex: Female
  Weight: 49.89 kg

DRUGS (3)
  1. NUVARING [Suspect]
     Active Substance: ETHINYL ESTRADIOL\ETONOGESTREL
     Indication: CYST RUPTURE
     Dosage: 3 WEEKS IN, 1 WEEK OUT
     Route: 067
     Dates: start: 20170104
  2. CYANOCOBALAMIN. [Concomitant]
     Active Substance: CYANOCOBALAMIN
     Dosage: UNK
  3. NUVARING [Suspect]
     Active Substance: ETHINYL ESTRADIOL\ETONOGESTREL
     Dosage: UNK
     Route: 067

REACTIONS (10)
  - Skin disorder [Not Recovered/Not Resolved]
  - Depression [Not Recovered/Not Resolved]
  - Incorrect product storage [Unknown]
  - Product use issue [Unknown]
  - Poor quality sleep [Not Recovered/Not Resolved]
  - Mood altered [Not Recovered/Not Resolved]
  - Vaginal discharge [Not Recovered/Not Resolved]
  - Food allergy [Not Recovered/Not Resolved]
  - Fatigue [Not Recovered/Not Resolved]
  - Therapeutic response unexpected [Unknown]

NARRATIVE: CASE EVENT DATE: 201609
